FAERS Safety Report 20959910 (Version 1)
Quarter: 2022Q2

REPORT INFORMATION
  Report Type: Spontaneous
  Country: TR (occurrence: TR)
  Receive Date: 20220614
  Receipt Date: 20220614
  Transmission Date: 20220720
  Serious: Yes (Death, Hospitalization)
  Sender: FDA-Public Use
  Company Number: TR-STRIDES ARCOLAB LIMITED-2022SP007015

PATIENT

DRUGS (18)
  1. DEXAMETHASONE [Suspect]
     Active Substance: DEXAMETHASONE
     Indication: Burkitt^s lymphoma
     Dosage: 10 MILLIGRAM/SQ. METE CYCLICAL(AS A PART OF COURSE AA-ON DAYS 1,2,3,4 AND 5)
     Route: 065
  2. DEXAMETHASONE [Suspect]
     Active Substance: DEXAMETHASONE
     Dosage: 10 MILLIGRAM/SQ. METER, CYCLICAL(AS A PART OF COURSE BB- ON DAYS 1,2,3,4 AND 5  )
     Route: 065
  3. IFOSFAMIDE [Suspect]
     Active Substance: IFOSFAMIDE
     Indication: Burkitt^s lymphoma
     Dosage: 800 MILLIGRAM/SQ. METERCYCLICAL(FOR 1H ON DAYS 1,2,3,4 AND 5 AS A PART OF COURSE AA)
     Route: 042
  4. METHOTREXATE [Suspect]
     Active Substance: METHOTREXATE
     Indication: Burkitt^s lymphoma
     Dosage: 1G/M2/36H,CYCLICAL ON DAY 1 AS A PART OF COURSE AA
     Route: 042
  5. METHOTREXATE [Suspect]
     Active Substance: METHOTREXATE
     Dosage: 1G/M2/36H,CYCLICAL ON DAY 1 AS A PART OF COURSE BB
     Route: 042
  6. METHOTREXATE [Suspect]
     Active Substance: METHOTREXATE
     Dosage: UNK,CYCLICA L(ON DAYS 1 AND 5 AS A PART OF COURSE AA)
     Route: 037
  7. METHOTREXATE [Suspect]
     Active Substance: METHOTREXATE
     Dosage: UNK,CYCLICAL(ON DAYS 1 AND 5 AS A PART OF COURSE BB)
     Route: 037
  8. CYTARABINE [Suspect]
     Active Substance: CYTARABINE
     Indication: Burkitt^s lymphoma
     Dosage: UNK, CYCLICAL(ON DAYS 1 AND 5 AS A PART OF COURSE BB)
     Route: 037
  9. CYTARABINE [Suspect]
     Active Substance: CYTARABINE
     Dosage: UNK, CYCLICAL (ON DAYS 1 AND 5 AS A PART OF COURSE BB)
     Route: 037
  10. CYTARABINE [Suspect]
     Active Substance: CYTARABINE
     Dosage: 150 MICROGRAM/SQ. METER, CYCLICAL( FOR 1 H ON DAYS 4 AND 5 AS A PART OF COURSE AA)
     Route: 042
  11. PREDNISOLONE [Suspect]
     Active Substance: PREDNISOLONE
     Indication: Burkitt^s lymphoma
     Dosage: UNK, CYCLICAL(ON DAYS 1 AND 5 AS A PART OF COURSE AA)
     Route: 037
  12. PREDNISOLONE [Suspect]
     Active Substance: PREDNISOLONE
     Dosage: UNK, CYCLICAL(ON DAYS 1 AND 5 AS A PART OF COURSE BB)
     Route: 037
  13. VINCRISTINE [Suspect]
     Active Substance: VINCRISTINE
     Indication: Burkitt^s lymphoma
     Dosage: 1.5 MILLIGRAM/SQ. METER,CYCLICAL(ON DAY 1 AS A PART OF COURSE AA)
     Route: 042
  14. VINCRISTINE [Suspect]
     Active Substance: VINCRISTINE
     Dosage: 1.5 MILLIGRAM/SQ. METER, CYCLICAL(ON DAY 1 AS A PART OF COURSE BB)
     Route: 042
  15. ETOPOSIDE [Suspect]
     Active Substance: ETOPOSIDE
     Indication: Burkitt^s lymphoma
     Dosage: 100 MILLIGRAM/SQ.METER,CYCLICAL(FOR 1H ON DAYS 4 AND 5 AS A PART OF COURSE AA)
     Route: 042
  16. DOXORUBICIN [Suspect]
     Active Substance: DOXORUBICIN
     Indication: Burkitt^s lymphoma
     Dosage: 25 MILLIGRAM/SQ. METER,CYCLICAL(FOR 1H ON DAYS 4 AND 5 AS A PART OF COURSE BB)
     Route: 042
  17. CYCLOPHOSPHAMIDE [Suspect]
     Active Substance: CYCLOPHOSPHAMIDE
     Indication: Burkitt^s lymphoma
     Dosage: 200 MILLIGRAM/SQ. METER,CYCLICAL(FOR 1H ON DAYS 1,2,3,4 AND 5 AS A PART OF COURSE BB)
     Route: 042
  18. LEUCOVORIN [Concomitant]
     Active Substance: LEUCOVORIN
     Indication: Evidence based treatment
     Dosage: 15 MILLIGRAM/SQ. METER,(AT 48 AND 54 HOURS AFTER THE BEGINNING OF THE METHOTREXATE INFUSION)
     Route: 065

REACTIONS (1)
  - Infection [Fatal]
